FAERS Safety Report 5664756-2 (Version None)
Quarter: 2008Q1

REPORT INFORMATION
  Report Type: 
  Country: None (occurrence: None)
  Receive Date: 20080314
  Receipt Date: 20080307
  Transmission Date: 20080703
  Serious: No
  Sender: FDA-Public Use
  Company Number: US-BAXTER-2008BH002067

PATIENT
  Age: 62 Year
  Sex: Female

DRUGS (2)
  1. HEPARIN SODIUM [Suspect]
     Indication: ANTICOAGULANT THERAPY
     Dosage: DOSE UNIT:UNKNOWN
     Route: 060
     Dates: start: 20070101
  2. THYROID TAB [Concomitant]
     Indication: HYPOTHYROIDISM
     Dosage: DOSE UNIT:UNKNOWN
     Route: 065

REACTIONS (3)
  - DYSPHAGIA [None]
  - LYMPHADENOPATHY [None]
  - TONGUE DISORDER [None]
